FAERS Safety Report 8546616-2 (Version None)
Quarter: 2012Q3

REPORT INFORMATION
  Report Type: 
  Country: None (occurrence: None)
  Receive Date: 20120727
  Receipt Date: 20120426
  Transmission Date: 20120928
  Serious: No
  Sender: FDA-Public Use
  Company Number: US-ASTRAZENECA-2012SE00193

PATIENT
  Age: 57 Year
  Sex: Female
  Weight: 81.6 kg

DRUGS (16)
  1. SEROQUEL XR [Suspect]
     Route: 048
  2. SEROQUEL XR [Suspect]
     Route: 048
     Dates: start: 20110101
  3. SEROQUEL XR [Suspect]
     Route: 048
  4. SEROQUEL XR [Suspect]
     Route: 048
  5. SEROQUEL XR [Suspect]
     Indication: DEPRESSION
     Route: 048
     Dates: start: 20110101
  6. SEROQUEL XR [Suspect]
     Route: 048
  7. SEROQUEL XR [Suspect]
     Route: 048
  8. SEROQUEL XR [Suspect]
     Route: 048
  9. SEROQUEL XR [Suspect]
     Route: 048
     Dates: start: 20110101
  10. SEROQUEL XR [Suspect]
     Indication: MANIA
     Route: 048
     Dates: start: 20110101
  11. SEROQUEL XR [Suspect]
     Route: 048
  12. SEROQUEL XR [Suspect]
     Route: 048
     Dates: start: 20110101
  13. TRILEPTAL [Concomitant]
     Dates: start: 20010101
  14. SEROQUEL XR [Suspect]
     Route: 048
  15. SEROQUEL XR [Suspect]
     Indication: ANXIETY
     Route: 048
     Dates: start: 20110101
  16. SEROQUEL XR [Suspect]
     Route: 048

REACTIONS (21)
  - APHAGIA [None]
  - GASTROINTESTINAL PAIN [None]
  - HYPERSOMNIA [None]
  - WEIGHT INCREASED [None]
  - OFF LABEL USE [None]
  - PANIC REACTION [None]
  - IRRITABLE BOWEL SYNDROME [None]
  - INSOMNIA [None]
  - INTRAOCULAR PRESSURE INCREASED [None]
  - ADVERSE EVENT [None]
  - MALAISE [None]
  - THERAPEUTIC RESPONSE UNEXPECTED [None]
  - DRUG INEFFECTIVE FOR UNAPPROVED INDICATION [None]
  - BLOOD CHOLESTEROL INCREASED [None]
  - ABNORMAL BEHAVIOUR [None]
  - COUGH [None]
  - DRUG WITHDRAWAL SYNDROME [None]
  - CONDITION AGGRAVATED [None]
  - HYPERTENSION [None]
  - BLOOD TRIGLYCERIDES INCREASED [None]
  - INTENTIONAL DRUG MISUSE [None]
